FAERS Safety Report 9793100 (Version 1)
Quarter: 2013Q4

REPORT INFORMATION
  Report Type: Spontaneous
  Country: US (occurrence: None)
  Receive Date: 20131231
  Receipt Date: 20131231
  Transmission Date: 20140711
  Serious: Yes (Hospitalization)
  Sender: FDA-Public Use
  Company Number: None

PATIENT
  Age: 65 Year
  Sex: Male
  Weight: 170.5 kg

DRUGS (1)
  1. FERUMOXYTOL [Suspect]
     Indication: NEPHROGENIC ANAEMIA
     Route: 042
     Dates: start: 20131220, end: 20131220

REACTIONS (4)
  - Nausea [None]
  - Hyperhidrosis [None]
  - Dyspnoea [None]
  - Vomiting [None]
